FAERS Safety Report 24374967 (Version 1)
Quarter: 2024Q3

REPORT INFORMATION
  Report Type: Spontaneous
  Country: US (occurrence: US)
  Receive Date: 20240927
  Receipt Date: 20240927
  Transmission Date: 20241017
  Serious: Yes (Life-Threatening, Other)
  Sender: MERCK
  Company Number: US-009507513-2409USA007949

PATIENT
  Sex: Male

DRUGS (1)
  1. BRIDION [Suspect]
     Active Substance: SUGAMMADEX
     Indication: Anaesthesia reversal
     Dosage: UNK
     Route: 042
     Dates: start: 20240903

REACTIONS (3)
  - Cardiac arrest [Recovered/Resolved]
  - Bladder stenosis [Unknown]
  - Ill-defined disorder [Unknown]

NARRATIVE: CASE EVENT DATE: 20240903
